FAERS Safety Report 8005120-0 (Version None)
Quarter: 2011Q4

REPORT INFORMATION
  Report Type: 
  Country: None (occurrence: None)
  Receive Date: 20111223
  Receipt Date: 20111214
  Transmission Date: 20120403
  Serious: Yes (Hospitalization, Other)
  Sender: FDA-Public Use
  Company Number: PHHY2011DE82410

PATIENT
  Sex: Male
  Weight: 124 kg

DRUGS (3)
  1. GLEEVEC [Suspect]
     Dosage: 100 MG, QD
     Dates: start: 20110628, end: 20110803
  2. GLEEVEC [Suspect]
     Dosage: 400 MG, QD
     Dates: start: 20110317, end: 20110325
  3. GLEEVEC [Suspect]
     Dosage: 400 MG, QD
     Dates: start: 20110404, end: 20110628

REACTIONS (6)
  - MUSCLE SPASMS [None]
  - RENAL FAILURE ACUTE [None]
  - RHABDOMYOLYSIS [None]
  - HYPERURICAEMIA [None]
  - BLOOD CREATINE PHOSPHOKINASE INCREASED [None]
  - MYOGLOBIN BLOOD INCREASED [None]
